FAERS Safety Report 24884437 (Version 1)
Quarter: 2025Q1

REPORT INFORMATION
  Report Type: Spontaneous
  Country: US (occurrence: US)
  Receive Date: 20250124
  Receipt Date: 20250124
  Transmission Date: 20250409
  Serious: No
  Sender: PURDUE
  Company Number: US-PURDUE-USA-2025-0314825

PATIENT
  Sex: Female

DRUGS (2)
  1. HYDROCODONE BITARTRATE AND ACETAMINOPHEN [Suspect]
     Active Substance: ACETAMINOPHEN\HYDROCODONE BITARTRATE
     Indication: Pain
     Route: 048
  2. HYSINGLA ER [Suspect]
     Active Substance: HYDROCODONE BITARTRATE
     Indication: Pain
     Dosage: 20 MG PER DAY
     Route: 048
     Dates: start: 202410

REACTIONS (6)
  - Insomnia [Unknown]
  - Malaise [Unknown]
  - Inadequate analgesia [Unknown]
  - Product dose omission issue [Unknown]
  - Product formulation issue [Unknown]
  - Product availability issue [Unknown]
